FAERS Safety Report 18555868 (Version 3)
Quarter: 2020Q4

REPORT INFORMATION
  Report Type: Spontaneous
  Country: US (occurrence: US)
  Receive Date: 20201127
  Receipt Date: 20201202
  Transmission Date: 20210114
  Serious: Yes (Death, Hospitalization, Other)
  Sender: FDA-Public Use
  Company Number: US-009507513-2011USA014123

PATIENT
  Age: 77 Year
  Sex: Male
  Weight: 54.83 kg

DRUGS (12)
  1. KEYTRUDA [Suspect]
     Active Substance: PEMBROLIZUMAB
     Dosage: 200 MG, CYCLIC (EVERY 3 WEEKS)
     Route: 042
  2. COMPAZINE [Concomitant]
     Active Substance: PROCHLORPERAZINE MALEATE
     Indication: NAUSEA
  3. MS CONTIN [Concomitant]
     Active Substance: MORPHINE SULFATE
     Dosage: 15 MG (EVERY 12 HOURS MAXIMUM 2 TABLET(S) PER DAY)
     Route: 048
     Dates: end: 20200224
  4. NORVASC [Concomitant]
     Active Substance: AMLODIPINE BESYLATE
     Dosage: 5 MG, 2X/DAY
     Route: 048
  5. INLYTA [Suspect]
     Active Substance: AXITINIB
     Dosage: 5 MG, CYCLIC (1 TABLET (5MG) BY MOUTH 2 TIMES DAILY FOR 21 DAYS)
     Route: 048
     Dates: start: 20191022, end: 20200212
  6. IMODIUM [Concomitant]
     Active Substance: LOPERAMIDE HYDROCHLORIDE
     Indication: DIARRHOEA
     Dosage: 2 MG, 4X/DAY
     Route: 048
  7. NEURONTIN [Concomitant]
     Active Substance: GABAPENTIN
     Dosage: 300 MG, 3X/DAY
     Route: 048
     Dates: end: 20200224
  8. CALTRATE WITH VITAMIN D [Concomitant]
     Active Substance: CALCIUM CARBONATE\CHOLECALCIFEROL
     Dosage: UNK, 2X/DAY
     Route: 048
     Dates: end: 20200223
  9. PRINIVIL [Concomitant]
     Active Substance: LISINOPRIL
     Dosage: 20 MG, 1 X/DAY
     Route: 048
     Dates: end: 20200224
  10. INLYTA [Suspect]
     Active Substance: AXITINIB
     Indication: RENAL CELL CARCINOMA
     Dosage: 5 MG, 2X/DAY
     Route: 048
     Dates: start: 20191022, end: 20200212
  11. COMPAZINE [Concomitant]
     Active Substance: PROCHLORPERAZINE MALEATE
     Indication: VOMITING
     Dosage: 10 MG, AS NEEDED (EVERY 6 HOURS AS NEEDED)
     Route: 048
     Dates: end: 20200224
  12. OMEPRAZOLE. [Concomitant]
     Active Substance: OMEPRAZOLE
     Dosage: 20 MG, 1 X/DAY
     Route: 048

REACTIONS (10)
  - Neoplasm progression [Fatal]
  - Metabolic acidosis [Unknown]
  - Intestinal ischaemia [Unknown]
  - Dehydration [Fatal]
  - Hypovolaemic shock [Unknown]
  - Abdominal pain [Unknown]
  - Stupor [Unknown]
  - Lower gastrointestinal haemorrhage [Unknown]
  - Acute kidney injury [Unknown]
  - Diarrhoea [Fatal]
